FAERS Safety Report 8237196-X (Version None)
Quarter: 2012Q1

REPORT INFORMATION
  Report Type: 
  Country: None (occurrence: None)
  Receive Date: 20120327
  Receipt Date: 20120327
  Transmission Date: 20120608
  Serious: No
  Sender: FDA-Public Use
  Company Number: None

PATIENT
  Sex: Male
  Weight: 83.914 kg

DRUGS (1)
  1. AVELOX [Suspect]
     Indication: PNEUMONIA
     Dosage: 400.0 MG
     Route: 042
     Dates: start: 20120323, end: 20120323

REACTIONS (3)
  - INJECTION SITE ERYTHEMA [None]
  - DRUG HYPERSENSITIVITY [None]
  - INJECTION SITE PRURITUS [None]
